FAERS Safety Report 5660184-4 (Version None)
Quarter: 2008Q1

REPORT INFORMATION
  Report Type: 
  Country: None (occurrence: None)
  Receive Date: 20080212
  Receipt Date: 20070518
  Transmission Date: 20080703
  Serious: Yes (Other)
  Sender: FDA-Public Use
  Company Number: MC200700194

PATIENT
  Age: 73 Year
  Sex: Female
  Weight: 83 kg

DRUGS (12)
  1. ANGIOMAX [Suspect]
     Indication: MITRAL VALVE REPLACEMENT
     Dosage: BOLUS, IV BOLUS; INTRAVENOUS
     Route: 040
     Dates: start: 20070301, end: 20070301
  2. ANGIOMAX [Suspect]
     Indication: MITRAL VALVE REPLACEMENT
     Dosage: BOLUS, IV BOLUS; INTRAVENOUS
     Route: 040
     Dates: start: 20070301, end: 20070301
  3. LEVOXYL [Concomitant]
  4. LIPITOR [Concomitant]
  5. WELLBUTRIN [Concomitant]
  6. TRAZODONE HCL [Concomitant]
  7. LISINOPRIL [Concomitant]
  8. COREG [Concomitant]
  9. ARGATROBAN [Concomitant]
  10. FERRLECIT /00023518/ (SODIUM FERRIGLUCONATE) [Concomitant]
  11. NEXIUM [Concomitant]
  12. ACIDOPHILUS (LACTOBACILLUS ACIDOPHILUS) [Concomitant]

REACTIONS (1)
  - HAEMORRHAGE [None]
